FAERS Safety Report 20119455 (Version 1)
Quarter: 2021Q4

REPORT INFORMATION
  Report Type: Spontaneous
  Country: NL (occurrence: NL)
  Receive Date: 20211126
  Receipt Date: 20211126
  Transmission Date: 20220303
  Serious: Yes (Other)
  Sender: FDA-Public Use
  Company Number: None

PATIENT
  Age: 61 Year
  Sex: Male
  Weight: 120 kg

DRUGS (1)
  1. FLUTICASONE FUROATE [Suspect]
     Active Substance: FLUTICASONE FUROATE
     Indication: Lung disorder
     Dosage: 27.5 ?G, QD, (ONCE A DAY BOTH NOSTRILS)
     Route: 045
     Dates: start: 20211022, end: 20211110

REACTIONS (8)
  - Syncope [Recovering/Resolving]
  - Confusional state [Unknown]
  - Swelling [Recovering/Resolving]
  - Nausea [Recovering/Resolving]
  - Dyspnoea [Recovering/Resolving]
  - Rash [Recovering/Resolving]
  - Aphasia [Unknown]
  - Disorientation [Unknown]

NARRATIVE: CASE EVENT DATE: 20211105
